FAERS Safety Report 8038288-0 (Version None)
Quarter: 2012Q1

REPORT INFORMATION
  Report Type: 
  Country: None (occurrence: None)
  Receive Date: 20120111
  Receipt Date: 20111211
  Transmission Date: 20120608
  Serious: No
  Sender: FDA-Public Use
  Company Number: US-AMGEN-USASP2011066012

PATIENT
  Age: 51 Year
  Sex: Male

DRUGS (2)
  1. ENBREL [Suspect]
     Indication: PSORIASIS
     Dosage: 50 MG, UNK
     Dates: start: 20060101
  2. ENBREL [Suspect]
     Indication: PUSTULAR PSORIASIS

REACTIONS (7)
  - LOW DENSITY LIPOPROTEIN ABNORMAL [None]
  - PSORIASIS [None]
  - BLOOD TRIGLYCERIDES ABNORMAL [None]
  - BLOOD CHOLESTEROL INCREASED [None]
  - DRUG HYPERSENSITIVITY [None]
  - HIGH DENSITY LIPOPROTEIN ABNORMAL [None]
  - TOOTH INFECTION [None]
